FAERS Safety Report 6894091-6 (Version None)
Quarter: 2010Q3

REPORT INFORMATION
  Report Type: 
  Country: None (occurrence: None)
  Receive Date: 20100802
  Receipt Date: 20100722
  Transmission Date: 20110219
  Serious: Yes (Other)
  Sender: FDA-Public Use
  Company Number: DE-JNJFOC-20100707682

PATIENT
  Sex: Female

DRUGS (3)
  1. TOPAMAX [Suspect]
     Indication: EPILEPSY
     Dosage: 0-0-1
     Route: 048
  2. TOPAMAX [Suspect]
     Route: 048
  3. ST. JOHN'S WORT [Concomitant]
     Route: 065

REACTIONS (7)
  - ABNORMAL SENSATION IN EYE [None]
  - DRUG DEPENDENCE [None]
  - DRUG WITHDRAWAL CONVULSIONS [None]
  - EYE PAIN [None]
  - HEADACHE [None]
  - MENTAL DISORDER [None]
  - NIGHTMARE [None]
